FAERS Safety Report 6316284-9 (Version None)
Quarter: 2009Q3

REPORT INFORMATION
  Report Type: 
  Country: None (occurrence: None)
  Receive Date: 20090820
  Receipt Date: 20090817
  Transmission Date: 20100115
  Serious: Yes (Hospitalization)
  Sender: FDA-Public Use
  Company Number: FR-AVENTIS-200917922GDDC

PATIENT
  Age: 57 Year
  Sex: Male
  Weight: 91 kg

DRUGS (4)
  1. DOCETAXEL [Suspect]
     Route: 042
     Dates: start: 20090724, end: 20090724
  2. CISPLATIN [Suspect]
     Route: 042
     Dates: start: 20090724, end: 20090724
  3. ANTINEOPLASTIC AGENTS [Suspect]
     Route: 042
     Dates: start: 20090723, end: 20090723
  4. ZOMETA [Suspect]
     Route: 042
     Dates: start: 20090722, end: 20090722

REACTIONS (2)
  - HYPOCALCAEMIA [None]
  - TROPONIN INCREASED [None]
